FAERS Safety Report 9152296 (Version 3)
Quarter: 2013Q2

REPORT INFORMATION
  Report Type: Spontaneous
  Country: US (occurrence: US)
  Receive Date: 20130308
  Receipt Date: 20130508
  Transmission Date: 20140414
  Serious: No
  Sender: FDA-Public Use
  Company Number: US-009507513-1303USA002532

PATIENT
  Age: 56 Year
  Sex: Male
  Weight: 68.25 kg

DRUGS (5)
  1. VICTRELIS [Suspect]
     Indication: CHRONIC HEPATITIS C
     Dosage: 4 200MG CAPSULES, Q8H
     Route: 048
     Dates: start: 20121014
  2. PEGINTRON [Suspect]
     Indication: CHRONIC HEPATITIS C
     Dosage: UNK, QW
     Route: 058
     Dates: start: 20120909
  3. RIBAPAK [Suspect]
     Indication: CHRONIC HEPATITIS C
     Dosage: UNK
  4. PROCRIT [Concomitant]
  5. CIALIS [Concomitant]

REACTIONS (3)
  - Haematocrit abnormal [Unknown]
  - Haemoglobin abnormal [Unknown]
  - Vomiting [Unknown]
